FAERS Safety Report 9678040 (Version 1)
Quarter: 2013Q4

REPORT INFORMATION
  Report Type: Spontaneous
  Country: GB (occurrence: None)
  Receive Date: 20131106
  Receipt Date: 20131106
  Transmission Date: 20140711
  Serious: Yes (Other)
  Sender: FDA-Public Use
  Company Number: AUR-APL-2013-09144

PATIENT
  Age: 47 Year
  Sex: Female

DRUGS (4)
  1. SIMVASTATIN (SIMVASTATIN) [Suspect]
     Indication: HYPERCHOLESTEROLAEMIA
     Dosage: 40 MG IN 1 D
     Route: 048
  2. ASPIRIN (ACETYLSALICYLIC ACID) [Concomitant]
  3. CLOPIDOGREL (CLOPIDOGREL) [Concomitant]
  4. RAMIPRIL (RAMIPRIL) [Concomitant]

REACTIONS (6)
  - Abnormal dreams [None]
  - Insomnia [None]
  - Myalgia [None]
  - Memory impairment [None]
  - Dyspnoea [None]
  - Total lung capacity decreased [None]
